FAERS Safety Report 4433003-1 (Version None)
Quarter: 2004Q3

REPORT INFORMATION
  Report Type: 
  Country: None (occurrence: None)
  Receive Date: 20040726
  Receipt Date: 20040401
  Transmission Date: 20050211
  Serious: No
  Sender: FDA-Public Use
  Company Number: USA040155752

PATIENT
  Age: 56 Year
  Sex: Female

DRUGS (1)
  1. FORTEO [Suspect]
     Dates: start: 20031204

REACTIONS (3)
  - INJECTION SITE ERYTHEMA [None]
  - PALATAL DISORDER [None]
  - STOMATITIS [None]
